FAERS Safety Report 4500803-9 (Version None)
Quarter: 2004Q4

REPORT INFORMATION
  Report Type: 
  Country: None (occurrence: None)
  Receive Date: 20041109
  Receipt Date: 20041101
  Transmission Date: 20050328
  Serious: Yes (Death, Life-Threatening, Hospitalization)
  Sender: FDA-Public Use
  Company Number: HQWYE441030SEP04

PATIENT
  Age: 66 Year
  Sex: Female
  Weight: 89 kg

DRUGS (2)
  1. MYLOTARG [Suspect]
     Indication: ACUTE MYELOID LEUKAEMIA
     Dosage: 17.73 MG 1 X PER 1 DAY,  INTRAVENOUS
     Route: 042
     Dates: start: 20040210, end: 20040210
  2. CYTARABINE [Suspect]
     Indication: CHEMOTHERAPY
     Dosage: 5.91 G 1 X PER 1 DAY
     Dates: start: 20040204, end: 20040208

REACTIONS (13)
  - ASCITES [None]
  - BLOOD SODIUM INCREASED [None]
  - COLITIS [None]
  - DISSEMINATED INTRAVASCULAR COAGULATION [None]
  - FEBRILE NEUTROPENIA [None]
  - HEPATIC FAILURE [None]
  - HEPATIC STEATOSIS [None]
  - LETHARGY [None]
  - OEDEMA [None]
  - PLEURAL EFFUSION [None]
  - RENAL FAILURE [None]
  - SEPSIS [None]
  - VENOOCCLUSIVE LIVER DISEASE [None]
